FAERS Safety Report 4808842-5 (Version None)
Quarter: 2005Q4

REPORT INFORMATION
  Report Type: 
  Country: None (occurrence: None)
  Receive Date: 20051021
  Receipt Date: 20030725
  Transmission Date: 20060501
  Serious: No
  Sender: FDA-Public Use
  Company Number: JP_030801484

PATIENT
  Age: 21 Year
  Sex: Female

DRUGS (1)
  1. ZYPREXA [Suspect]
     Indication: SCHIZOPHRENIA
     Dates: start: 20020904

REACTIONS (3)
  - INFECTION [None]
  - PYREXIA [None]
  - WHITE BLOOD CELL COUNT INCREASED [None]
